FAERS Safety Report 16065500 (Version 1)
Quarter: 2019Q1

REPORT INFORMATION
  Report Type: Spontaneous
  Country: US (occurrence: US)
  Receive Date: 20190313
  Receipt Date: 20190313
  Transmission Date: 20190418
  Serious: No
  Sender: FDA-Public Use
  Company Number: US-APOTEX-2019AP007688

PATIENT
  Age: 73 Year
  Sex: Female

DRUGS (2)
  1. HYDROCODONE [Concomitant]
     Active Substance: HYDROCODONE
     Indication: PAIN
     Dosage: 2 DF, Q.4H. (2 PILLS EVERY FOUR HOURS )
     Route: 065
  2. TIZANIDINE HYDROCHLORIDE. [Suspect]
     Active Substance: TIZANIDINE HYDROCHLORIDE
     Indication: MUSCLE DISORDER
     Dosage: 2 MG, TID (2 CAPSULES EVERY 8 HOURS)
     Route: 048
     Dates: start: 20190128, end: 20190128

REACTIONS (2)
  - Dyspepsia [Not Recovered/Not Resolved]
  - Hypoaesthesia [Not Recovered/Not Resolved]

NARRATIVE: CASE EVENT DATE: 20190128
